FAERS Safety Report 6358711-7 (Version None)
Quarter: 2009Q3

REPORT INFORMATION
  Report Type: 
  Country: None (occurrence: None)
  Receive Date: 20090916
  Receipt Date: 20090731
  Transmission Date: 20100115
  Serious: No
  Sender: FDA-Public Use
  Company Number: US-ABBOTT-09P-163-0569826-00

PATIENT
  Age: 55 Year
  Sex: Female
  Weight: 75.818 kg

DRUGS (10)
  1. TRILIPIX [Suspect]
     Indication: DYSLIPIDAEMIA
     Dosage: DAILY
     Route: 048
     Dates: start: 20090401
  2. SEROQUEL [Concomitant]
     Indication: DRUG USE FOR UNKNOWN INDICATION
     Dosage: DAILY
  3. PROTONIX [Concomitant]
     Indication: DRUG USE FOR UNKNOWN INDICATION
     Dosage: DAILY
     Route: 048
     Dates: start: 20060406
  4. CELEXA [Concomitant]
     Indication: DRUG USE FOR UNKNOWN INDICATION
  5. LORAZEPAM [Concomitant]
     Indication: DRUG USE FOR UNKNOWN INDICATION
     Route: 048
  6. LEVOTHYROXINE SODIUM [Concomitant]
     Indication: DRUG USE FOR UNKNOWN INDICATION
     Route: 048
     Dates: start: 20090115
  7. SENOKOT [Concomitant]
     Indication: DRUG USE FOR UNKNOWN INDICATION
     Dosage: DAILY
     Route: 048
  8. DIAZEPAM [Concomitant]
     Indication: DRUG USE FOR UNKNOWN INDICATION
  9. ALBUTEROL [Concomitant]
     Indication: WHEEZING
     Route: 055
  10. ALBUTEROL [Concomitant]
     Indication: CHEST DISCOMFORT

REACTIONS (1)
  - HALLUCINATION [None]
